FAERS Safety Report 5889826-5 (Version None)
Quarter: 2008Q3

REPORT INFORMATION
  Report Type: 
  Country: None (occurrence: None)
  Receive Date: 20080919
  Receipt Date: 20080912
  Transmission Date: 20090109
  Serious: Yes (Other)
  Sender: FDA-Public Use
  Company Number: AR-JNJFOC-20080802871

PATIENT
  Sex: Female
  Weight: 53 kg

DRUGS (2)
  1. IBUPIRAC 400 MG [Suspect]
     Indication: HEADACHE
     Route: 048
  2. T4 [Concomitant]
     Indication: HYPOTHYROIDISM
     Route: 048

REACTIONS (1)
  - LEUKOPENIA [None]
